FAERS Safety Report 5429046-1 (Version None)
Quarter: 2007Q3

REPORT INFORMATION
  Report Type: 
  Country: None (occurrence: None)
  Receive Date: 20070829
  Receipt Date: 20070226
  Transmission Date: 20080115
  Serious: No
  Sender: FDA-Public Use
  Company Number: A0640983A

PATIENT

DRUGS (1)
  1. MALARONE [Suspect]
     Indication: MALARIA
     Route: 048

REACTIONS (1)
  - ALOPECIA [None]
